FAERS Safety Report 25655619 (Version 2)
Quarter: 2025Q3

REPORT INFORMATION
  Report Type: Spontaneous
  Country: US (occurrence: US)
  Receive Date: 20250807
  Receipt Date: 20250812
  Transmission Date: 20251020
  Serious: Yes (Life-Threatening, Other)
  Sender: ORGANON
  Company Number: US-MLMSERVICE-20250723-PI588886-00226-1

PATIENT
  Age: 72 Year
  Sex: Male

DRUGS (5)
  1. REMERON [Suspect]
     Active Substance: MIRTAZAPINE
     Indication: Major depression
  2. RISPERIDONE [Suspect]
     Active Substance: RISPERIDONE
     Indication: Agitation
     Dosage: 0.5 MILLIGRAM, AS NEEDED
  3. RISPERIDONE [Suspect]
     Active Substance: RISPERIDONE
     Indication: Paranoia
     Dosage: TITRATED UP TO 2 MG AT NIGHT
  4. VALPROIC ACID [Suspect]
     Active Substance: VALPROIC ACID
     Indication: Mood swings
     Dosage: 500 MILLIGRAM, AT NIGHT
  5. VALPROIC ACID [Suspect]
     Active Substance: VALPROIC ACID
     Indication: Abnormal behaviour

REACTIONS (4)
  - Neutropenia [Recovering/Resolving]
  - Leukopenia [Recovering/Resolving]
  - Cytopenia [Recovering/Resolving]
  - Drug ineffective [Unknown]
